FAERS Safety Report 8880130 (Version 1)
Quarter: 2012Q4

REPORT INFORMATION
  Report Type: 
  Country: FR (occurrence: FR)
  Receive Date: 20121031
  Receipt Date: 20121031
  Transmission Date: 20130627
  Serious: Yes (Other)
  Sender: FDA-Public Use
  Company Number: FR-ASTRAZENECA-2012SE77516

PATIENT
  Age: 23389 Day
  Sex: Male
  Weight: 70 kg

DRUGS (3)
  1. XEROQUEL [Suspect]
     Indication: DEPRESSION
     Route: 048
     Dates: start: 20120902, end: 20120915
  2. THERALENE [Concomitant]
     Indication: INSOMNIA
     Route: 048
     Dates: start: 201204
  3. SEROPLEX [Concomitant]
     Indication: DEPRESSION
     Route: 048
     Dates: start: 201207

REACTIONS (1)
  - Urticaria [Recovered/Resolved]
